FAERS Safety Report 8495246 (Version 4)
Quarter: 2012Q4

REPORT INFORMATION
  Report Type: 
  Country: US (occurrence: US)
  Receive Date: 20120405
  Receipt Date: 20120830
  Transmission Date: 20130627
  Serious: Yes (Other)
  Sender: FDA-Public Use
  Company Number: US-PFIZER INC-2012081764

PATIENT
  Age: 78 Year
  Sex: Female
  Weight: 78.01 kg

DRUGS (15)
  1. DIFLUCAN [Suspect]
     Dosage: 200 mg, 1x/day
     Route: 048
  2. ASPIRIN [Concomitant]
     Dosage: 81 mg, UNK
  3. COREG [Concomitant]
     Dosage: UNK
  4. VITAMIN B12 [Concomitant]
     Dosage: UNK
  5. FLEXERIL [Concomitant]
     Indication: MUSCLE SPASMS
     Dosage: UNK
  6. MAGNESIUM [Concomitant]
     Dosage: UNK, 2x/day
  7. MICROZIDE [Concomitant]
     Dosage: UNK
  8. PRADAXA [Concomitant]
     Dosage: 75 mg, 2x/day
  9. PROTONIX [Concomitant]
     Dosage: UNK, 1x/day
  10. TRADJENTA [Concomitant]
     Dosage: UNK
     Route: 048
  11. ZOLOFT [Concomitant]
     Dosage: UNK
  12. ZOVIRAX [Concomitant]
     Dosage: UNK
  13. CALCIUM [Concomitant]
     Dosage: UNK
  14. TOVIAZ [Concomitant]
     Dosage: UNK
  15. VESICARE [Concomitant]
     Dosage: UNK

REACTIONS (4)
  - Cerebrovascular accident [Unknown]
  - Hip fracture [Unknown]
  - Fall [Unknown]
  - Atrial fibrillation [Unknown]
